FAERS Safety Report 10666097 (Version 1)
Quarter: 2014Q4

REPORT INFORMATION
  Report Type: Spontaneous
  Country: RU (occurrence: RU)
  Receive Date: 20141219
  Receipt Date: 20141219
  Transmission Date: 20150529
  Serious: Yes (Life-Threatening, Hospitalization, Other)
  Sender: FDA-Public Use
  Company Number: RU-ASTRAZENECA-2014SE96017

PATIENT
  Age: 27265 Day
  Sex: Female
  Weight: 76 kg

DRUGS (25)
  1. CEFTRIAXONE. [Concomitant]
     Active Substance: CEFTRIAXONE
     Route: 040
     Dates: start: 20141204
  2. ATORVASTATIN [Concomitant]
     Active Substance: ATORVASTATIN
     Indication: ACUTE CORONARY SYNDROME
     Route: 048
     Dates: start: 20141204
  3. OMEZ [Concomitant]
     Active Substance: OMEPRAZOLE
     Indication: ACUTE CORONARY SYNDROME
     Route: 048
     Dates: start: 20141204
  4. BRILINTA [Suspect]
     Active Substance: TICAGRELOR
     Indication: ACUTE CORONARY SYNDROME
     Route: 048
     Dates: start: 20141204, end: 20141204
  5. HEPARIN [Concomitant]
     Active Substance: HEPARIN SODIUM
     Indication: ACUTE CORONARY SYNDROME
     Route: 040
     Dates: start: 20141204, end: 20141204
  6. HEPARIN [Concomitant]
     Active Substance: HEPARIN SODIUM
     Indication: ELECTROCARDIOGRAM ST SEGMENT ELEVATION
     Route: 040
     Dates: start: 20141204, end: 20141204
  7. INTEGRILIN [Concomitant]
     Active Substance: EPTIFIBATIDE
     Indication: ELECTROCARDIOGRAM ST SEGMENT ELEVATION
     Route: 041
     Dates: start: 20141204, end: 20141204
  8. ATORVASTATIN [Concomitant]
     Active Substance: ATORVASTATIN
     Indication: ELECTROCARDIOGRAM ST SEGMENT ELEVATION
     Route: 048
     Dates: start: 20141204
  9. BRILINTA [Suspect]
     Active Substance: TICAGRELOR
     Indication: ACUTE CORONARY SYNDROME
     Route: 048
     Dates: start: 20141204
  10. HEPARIN [Concomitant]
     Active Substance: HEPARIN SODIUM
     Indication: ACUTE CORONARY SYNDROME
     Route: 041
     Dates: start: 20141204, end: 20141205
  11. ASPIRIN. [Concomitant]
     Active Substance: ASPIRIN
     Indication: ELECTROCARDIOGRAM ST SEGMENT ELEVATION
     Route: 048
     Dates: start: 20141204, end: 20141204
  12. BRILINTA [Suspect]
     Active Substance: TICAGRELOR
     Indication: ELECTROCARDIOGRAM ST SEGMENT ELEVATION
     Route: 048
     Dates: start: 20141204
  13. SUPRASTIN [Concomitant]
     Active Substance: CHLOROPYRAMINE HYDROCHLORIDE
     Dosage: 2
     Route: 040
     Dates: start: 20141204, end: 20141204
  14. ACTRAPID [Concomitant]
     Active Substance: INSULIN HUMAN
     Indication: DIABETES MELLITUS
     Route: 041
     Dates: start: 20141204, end: 20141204
  15. CARDIASK [Concomitant]
     Active Substance: ASPIRIN
     Indication: ELECTROCARDIOGRAM ST SEGMENT ELEVATION
     Route: 048
     Dates: start: 20141205
  16. DOPMIN [Concomitant]
     Indication: ELECTROCARDIOGRAM ST SEGMENT ELEVATION
     Route: 041
     Dates: start: 20141204, end: 20141204
  17. INTEGRILIN [Concomitant]
     Active Substance: EPTIFIBATIDE
     Indication: ELECTROCARDIOGRAM ST SEGMENT ELEVATION
     Route: 040
     Dates: start: 20141204, end: 20141204
  18. CARDIASK [Concomitant]
     Active Substance: ASPIRIN
     Indication: ACUTE CORONARY SYNDROME
     Route: 048
     Dates: start: 20141205
  19. DOPMIN [Concomitant]
     Indication: ACUTE CORONARY SYNDROME
     Route: 041
     Dates: start: 20141204, end: 20141204
  20. ASPIRIN. [Concomitant]
     Active Substance: ASPIRIN
     Indication: ACUTE CORONARY SYNDROME
     Route: 048
     Dates: start: 20141204, end: 20141204
  21. BRILINTA [Suspect]
     Active Substance: TICAGRELOR
     Indication: ELECTROCARDIOGRAM ST SEGMENT ELEVATION
     Route: 048
     Dates: start: 20141204, end: 20141204
  22. HEPARIN [Concomitant]
     Active Substance: HEPARIN SODIUM
     Indication: ELECTROCARDIOGRAM ST SEGMENT ELEVATION
     Route: 041
     Dates: start: 20141204, end: 20141205
  23. INTEGRILIN [Concomitant]
     Active Substance: EPTIFIBATIDE
     Indication: ACUTE CORONARY SYNDROME
     Route: 040
     Dates: start: 20141204, end: 20141204
  24. INTEGRILIN [Concomitant]
     Active Substance: EPTIFIBATIDE
     Indication: ACUTE CORONARY SYNDROME
     Route: 041
     Dates: start: 20141204, end: 20141204
  25. OMEZ [Concomitant]
     Active Substance: OMEPRAZOLE
     Indication: ELECTROCARDIOGRAM ST SEGMENT ELEVATION
     Route: 048
     Dates: start: 20141204

REACTIONS (4)
  - Ventricular fibrillation [Unknown]
  - Thrombosis in device [Recovering/Resolving]
  - Respiratory arrest [Unknown]
  - Circulatory collapse [Unknown]

NARRATIVE: CASE EVENT DATE: 20141204
